FAERS Safety Report 6891292-8 (Version None)
Quarter: 2010Q3

REPORT INFORMATION
  Report Type: 
  Country: None (occurrence: None)
  Receive Date: 20100731
  Receipt Date: 20090722
  Transmission Date: 20110219
  Serious: No
  Sender: FDA-Public Use
  Company Number: US-PFIZER INC-2009245013

PATIENT
  Age: 71 Year
  Sex: Female
  Weight: 86.168 kg

DRUGS (1)
  1. LIPITOR [Suspect]
     Indication: BLOOD CHOLESTEROL INCREASED
     Dosage: 40 MG, 2X/DAY
     Route: 048

REACTIONS (2)
  - MEDICATION ERROR [None]
  - MYALGIA [None]
